FAERS Safety Report 20253873 (Version 1)
Quarter: 2021Q4

REPORT INFORMATION
  Report Type: Report from Study
  Country: US (occurrence: US)
  Receive Date: 20211230
  Receipt Date: 20211230
  Transmission Date: 20220303
  Serious: No
  Sender: FDA-Public Use
  Company Number: US-Ipsen Biopharmaceuticals, Inc.-2021-32895

PATIENT
  Age: 43 Year

DRUGS (2)
  1. DYSPORT [Suspect]
     Active Substance: ABOBOTULINUMTOXINA
     Indication: Muscle spasticity
     Dosage: 1500 IU(FINGER FLEXOR 200 IU,WRIST FLEXOR 100 IU,ELBOW FLEXORS 200 IU,LOWER LIMB DISTAL MUSCLES 1000
     Route: 065
  2. DYSPORT [Suspect]
     Active Substance: ABOBOTULINUMTOXINA
     Indication: Muscle spasticity

REACTIONS (1)
  - Muscle spasticity [Unknown]
